FAERS Safety Report 9105400 (Version 2)
Quarter: 2013Q1

REPORT INFORMATION
  Report Type: Spontaneous
  Country: DE (occurrence: DE)
  Receive Date: 20130220
  Receipt Date: 20130301
  Transmission Date: 20140127
  Serious: Yes (Death, Hospitalization)
  Sender: FDA-Public Use
  Company Number: DE-BRISTOL-MYERS SQUIBB COMPANY-16778011

PATIENT
  Age: 58 Year
  Sex: Female

DRUGS (1)
  1. YERVOY [Suspect]
     Indication: METASTATIC MALIGNANT MELANOMA
     Dosage: 11JUN12
     Dates: start: 20120521

REACTIONS (4)
  - Malignant neoplasm progression [Fatal]
  - Weight decreased [Not Recovered/Not Resolved]
  - Colitis [Recovering/Resolving]
  - Renal failure [Recovering/Resolving]
